FAERS Safety Report 4897517-2 (Version None)
Quarter: 2006Q1

REPORT INFORMATION
  Report Type: 
  Country: None (occurrence: None)
  Receive Date: 20060130
  Receipt Date: 20060130
  Transmission Date: 20060701
  Serious: Yes (Other)
  Sender: FDA-Public Use
  Company Number: None

PATIENT
  Sex: Female
  Weight: 97.5234 kg

DRUGS (3)
  1. ARANESP [Suspect]
     Indication: ANAEMIA
     Dosage: 200 MCG Q 2 WEEKS SUBQ
     Route: 058
     Dates: start: 20051202
  2. ARANESP [Suspect]
     Indication: ANAEMIA
     Dosage: 200 MCG Q 2 WEEKS SUBQ
     Route: 058
     Dates: start: 20051216
  3. ARANESP [Suspect]
     Indication: ANAEMIA
     Dosage: 150 MCG Q 2 WEEKS SUBQ
     Route: 058
     Dates: start: 20051230

REACTIONS (5)
  - DYSPNOEA [None]
  - GENERALISED OEDEMA [None]
  - LEUKOCYTOCLASTIC VASCULITIS [None]
  - NAUSEA [None]
  - PAIN [None]
